FAERS Safety Report 15375803 (Version 1)
Quarter: 2018Q4

REPORT INFORMATION
  Report Type: Spontaneous
  Country: GB (occurrence: ES)
  Receive Date: 20180912
  Receipt Date: 20180912
  Transmission Date: 20190204
  Serious: Yes (Life-Threatening, Hospitalization)
  Sender: FDA-Public Use
  Company Number: ES-FRESENIUS KABI-FK201804570

PATIENT
  Age: 57 Year
  Sex: Male

DRUGS (15)
  1. FUROSEMIDE (MANUFACTURER UNKNOWN) [Suspect]
     Active Substance: FUROSEMIDE
     Indication: PRODUCT USED FOR UNKNOWN INDICATION
     Route: 065
     Dates: start: 20180124, end: 20180205
  2. PIPERACILLIN/TAZOBACTAM (MANUFACTURER UNKNOWN) [Suspect]
     Active Substance: PIPERACILLIN SODIUM\TAZOBACTAM SODIUM
     Indication: PRODUCT USED FOR UNKNOWN INDICATION
     Dosage: UNKNOWN
     Route: 065
     Dates: start: 20180124, end: 20180201
  3. TRIMETOPRIM SULFAMETOXAZOL [Concomitant]
     Active Substance: SULFAMETHOXAZOLE\TRIMETHOPRIM
     Indication: PRODUCT USED FOR UNKNOWN INDICATION
     Dates: start: 20180203, end: 20180207
  4. LABETALOL [Concomitant]
     Active Substance: LABETALOL\LABETALOL HYDROCHLORIDE
     Indication: PRODUCT USED FOR UNKNOWN INDICATION
     Dosage: ()
     Dates: start: 20180122
  5. CAPTOPRIL. [Concomitant]
     Active Substance: CAPTOPRIL
     Indication: PRODUCT USED FOR UNKNOWN INDICATION
     Dates: start: 20180122
  6. NOLOTIL (METAMIZOLE MAGNESIUM) [Concomitant]
     Active Substance: METAMIZOLE MAGNESIUM
     Indication: PRODUCT USED FOR UNKNOWN INDICATION
     Dates: start: 20180124, end: 20180126
  7. AMOXILICILINA CLAVULANICO [Concomitant]
     Indication: PRODUCT USED FOR UNKNOWN INDICATION
     Dates: start: 20180124, end: 20180128
  8. VANCOMICINA [Suspect]
     Active Substance: VANCOMYCIN
     Indication: PRODUCT USED FOR UNKNOWN INDICATION
     Dates: start: 20180128, end: 20180204
  9. LEVETIRAZETAM [Suspect]
     Active Substance: LEVETIRACETAM
     Indication: PRODUCT USED FOR UNKNOWN INDICATION
     Dates: start: 20180124, end: 20180207
  10. METILPREDNISONA [Concomitant]
     Indication: PRODUCT USED FOR UNKNOWN INDICATION
     Dates: start: 20180202
  11. CISATRACURIO [Concomitant]
     Indication: PRODUCT USED FOR UNKNOWN INDICATION
     Dates: start: 20180129, end: 20180204
  12. FLUMIL [Concomitant]
     Active Substance: ACETYLCYSTEINE
     Indication: PRODUCT USED FOR UNKNOWN INDICATION
     Dates: start: 20180126, end: 20180204
  13. CEFEPIME (MANUFACTURER UNKNOWN) [Suspect]
     Active Substance: CEFEPIME HYDROCHLORIDE
     Indication: PRODUCT USED FOR UNKNOWN INDICATION
     Dosage: UNKNOWN
     Route: 065
     Dates: start: 20180202, end: 20180205
  14. OMEPRAZOL [Suspect]
     Active Substance: OMEPRAZOLE
     Indication: PRODUCT USED FOR UNKNOWN INDICATION
     Dates: start: 20171224, end: 20180206
  15. PRIMPERAM [Concomitant]
     Indication: PRODUCT USED FOR UNKNOWN INDICATION
     Dates: start: 20180126

REACTIONS (1)
  - Toxic epidermal necrolysis [Recovering/Resolving]

NARRATIVE: CASE EVENT DATE: 20180203
